FAERS Safety Report 20705883 (Version 1)
Quarter: 2022Q2

REPORT INFORMATION
  Report Type: Spontaneous
  Country: US (occurrence: US)
  Receive Date: 20220413
  Receipt Date: 20220413
  Transmission Date: 20220721
  Serious: Yes (Other)
  Sender: FDA-Public Use
  Company Number: US-PFIZER INC-2017161696

PATIENT
  Age: 79 Year
  Sex: Female

DRUGS (22)
  1. PREMARIN [Suspect]
     Active Substance: ESTROGENS, CONJUGATED
     Dosage: 1/2 TO 1 APPLICATOR M W F FOR 1 MONTH
     Route: 067
  2. PREMARIN [Suspect]
     Active Substance: ESTROGENS, CONJUGATED
     Dosage: USE 1 APPLICATOR INTRAVAGINALLY 2 TIMES PER WEEK
     Route: 067
  3. MELATONIN [Concomitant]
     Active Substance: MELATONIN
     Dosage: 5 MG, AS NEEDED [ONE AT BEDTIME AS NEEDED]
     Route: 048
  4. FISH OIL [Concomitant]
     Active Substance: FISH OIL
     Dosage: 1000 MG, DAILY
  5. TOPROL XL [Concomitant]
     Active Substance: METOPROLOL SUCCINATE
     Indication: Blood pressure abnormal
     Dosage: 25 MG, 1X/DAY  [1 TAB Q AM]
  6. TOPROL XL [Concomitant]
     Active Substance: METOPROLOL SUCCINATE
     Indication: Cardiac disorder
  7. NITROSTAT [Concomitant]
     Active Substance: NITROGLYCERIN
     Indication: Chest pain
     Dosage: 0.4 MG, UNK[TAKE ONE EVERY 5 MINUTES UP TO THREE TABS ]
     Route: 060
  8. ISOSORBIDE MONONITRATE [Concomitant]
     Active Substance: ISOSORBIDE MONONITRATE
     Dosage: 90 MG, DAILY (1 1/2 TABLETS DAILY)
  9. HYDROCHLOROTHIAZIDE [Concomitant]
     Active Substance: HYDROCHLOROTHIAZIDE
     Indication: Oedema
     Dosage: 12.5 MG, DAILY
     Route: 048
  10. PRIMIDONE [Concomitant]
     Active Substance: PRIMIDONE
     Dosage: 250 MG, 2X/DAY
     Route: 048
  11. CALCIUM + MAGNESIUM + ZINK [Concomitant]
     Dosage: 1 DF, DAILY
  12. VITAMIN D [Concomitant]
     Active Substance: VITAMIN D NOS
     Dosage: 1000 IU, DAILY
     Route: 048
  13. CYANOCOBALAMIN [Concomitant]
     Active Substance: CYANOCOBALAMIN
     Dosage: 1 ML, MONTHLY
  14. ASPIRIN [Concomitant]
     Active Substance: ASPIRIN
     Dosage: 81 MG, 2X/DAY
  15. IMIPRAMINE HYDROCHLORIDE [Concomitant]
     Active Substance: IMIPRAMINE HYDROCHLORIDE
     Dosage: 10 MG, 3X/DAY
     Route: 048
  16. PAXIL [Concomitant]
     Active Substance: PAROXETINE HYDROCHLORIDE
     Dosage: 30 MG, DAILY [1 TAB IN AM AND 1/2 TAB IN PM]
  17. LEVOTHYROXINE SODIUM [Concomitant]
     Active Substance: LEVOTHYROXINE SODIUM
     Dosage: 100 UG, 1X/DAY[ONE TAB IN AM ON EMPTY STOMACH]
     Route: 048
  18. DICLOFENAC SODIUM [Concomitant]
     Active Substance: DICLOFENAC SODIUM
     Dosage: 75 MG, 2X/DAY
     Route: 048
  19. LORADAMED [Concomitant]
     Dosage: 10 MG, 1X/DAY
     Route: 048
  20. FENOFIBRATE [Concomitant]
     Active Substance: FENOFIBRATE
     Dosage: 160 MG, DAILY
     Route: 048
  21. STOOL SOFTENER (DOCUSATE) [Concomitant]
     Active Substance: DOCUSATE
     Dosage: UNK UNK, DAILY [1-2 CAPSULES PO DAILY]
     Route: 048
  22. PERCOCET [Concomitant]
     Active Substance: ACETAMINOPHEN\OXYCODONE HYDROCHLORIDE
     Indication: Pain
     Dosage: 1 DF, AS NEEDED  (OXYCODONE HYDROCHLORIDE 7.5MG)/(PARACETAMOL325MG)]
     Route: 048

REACTIONS (6)
  - Pneumonia [Recovering/Resolving]
  - COVID-19 [Recovering/Resolving]
  - Illness [Unknown]
  - Nervousness [Unknown]
  - Asthenia [Unknown]
  - Off label use [Unknown]
